FAERS Safety Report 8131540-X (Version None)
Quarter: 2012Q1

REPORT INFORMATION
  Report Type: 
  Country: None (occurrence: None)
  Receive Date: 20120213
  Receipt Date: 20120202
  Transmission Date: 20120608
  Serious: Yes (Other)
  Sender: FDA-Public Use
  Company Number: CA-JNJFOC-20120201868

PATIENT
  Sex: Female
  Weight: 51 kg

DRUGS (10)
  1. REMICADE [Suspect]
     Indication: RHEUMATOID ARTHRITIS
     Route: 042
     Dates: start: 20050125
  2. PREDNISONE TAB [Concomitant]
     Route: 065
  3. TYLENOL W/ CODEINE NO. 3 [Concomitant]
     Route: 065
  4. REMICADE [Suspect]
     Dosage: 48TH INFUSION
     Route: 042
     Dates: start: 20111130
  5. RABEPRAZOLE SODIUM [Concomitant]
     Route: 065
  6. LIPITOR [Concomitant]
     Route: 065
  7. METHOTREXATE [Concomitant]
     Route: 065
  8. DIDROCAL [Concomitant]
     Route: 065
  9. ALL OTHER THERAPEUTICS [Concomitant]
     Route: 065
  10. PRILOSEC [Concomitant]
     Route: 065

REACTIONS (2)
  - WOUND [None]
  - FALL [None]
